FAERS Safety Report 19270590 (Version 2)
Quarter: 2021Q2

REPORT INFORMATION
  Report Type: Report from Study
  Country: None (occurrence: JP)
  Receive Date: 20210518
  Receipt Date: 20210525
  Transmission Date: 20210717
  Serious: Yes (Other)
  Sender: FDA-Public Use
  Company Number: JP-ABBVIE-19P-087-3210072-00

PATIENT
  Age: 60 Year
  Sex: Male
  Weight: 65.9 kg

DRUGS (9)
  1. MUCOSOLVAN [Concomitant]
     Active Substance: AMBROXOL HYDROCHLORIDE
     Indication: BULBOSPINAL MUSCULAR ATROPHY CONGENITAL
     Dosage: 45 MILLIGRAM
     Route: 065
  2. ADETPHOS [Concomitant]
     Active Substance: ADENOSINE TRIPHOSPHATE
     Indication: BULBOSPINAL MUSCULAR ATROPHY CONGENITAL
     Dosage: 60 MILLIGRAM
     Route: 065
  3. LEUPRORELIN [Suspect]
     Active Substance: LEUPROLIDE ACETATE
     Dosage: 1.88 MILLIGRAM, Q3MONTHS
     Route: 058
     Dates: start: 20190513, end: 20190513
  4. LEUPRORELIN [Suspect]
     Active Substance: LEUPROLIDE ACETATE
     Dosage: 11.25 MILLIGRAM, Q3MONTHS
     Route: 058
     Dates: start: 20190708
  5. LEUPRORELIN [Suspect]
     Active Substance: LEUPROLIDE ACETATE
     Indication: BULBOSPINAL MUSCULAR ATROPHY CONGENITAL
     Dosage: 11.25 MILLIGRAM, Q3MONTHS
     Route: 058
     Dates: start: 20180521, end: 20181105
  6. METHYCOBAL [Concomitant]
     Active Substance: METHYLCOBALAMIN
     Indication: BULBOSPINAL MUSCULAR ATROPHY CONGENITAL
     Dosage: 1500 MICROGRAM
     Route: 065
  7. LEUPRORELIN [Suspect]
     Active Substance: LEUPROLIDE ACETATE
     Dosage: 5.6 MILLIGRAM, Q3MONTHS
     Route: 058
     Dates: start: 20190225, end: 20190225
  8. NEUQUINON [Concomitant]
     Active Substance: DIETARY SUPPLEMENT\UBIDECARENONE
     Indication: BULBOSPINAL MUSCULAR ATROPHY CONGENITAL
     Dosage: 30 MILLIGRAM
     Route: 065
  9. JUVELA N [Concomitant]
     Active Substance: TOCOPHERYL NICOTINATE, D-.ALPHA.
     Indication: BULBOSPINAL MUSCULAR ATROPHY CONGENITAL
     Dosage: 600 MILLIGRAM
     Route: 065

REACTIONS (3)
  - Underdose [Unknown]
  - Diabetes mellitus [Recovering/Resolving]
  - Injection site granuloma [Recovering/Resolving]

NARRATIVE: CASE EVENT DATE: 20180813
